FAERS Safety Report 9524760 (Version 2)
Quarter: 2013Q4

REPORT INFORMATION
  Report Type: Report from Study
  Country: US (occurrence: US)
  Receive Date: 20130916
  Receipt Date: 20131015
  Transmission Date: 20140711
  Serious: No
  Sender: FDA-Public Use
  Company Number: PHEH2013US019104

PATIENT
  Age: 63 Year
  Sex: Male
  Weight: 78.5 kg

DRUGS (12)
  1. TASIGNA [Suspect]
     Indication: CHRONIC MYELOID LEUKAEMIA
     Dosage: 2 DF, BID
     Route: 048
  2. TASIGNA [Suspect]
     Dosage: 1 DF AM + 2 DF PM
  3. HYDREA [Concomitant]
     Dosage: 500 MG, UNK
  4. CELEBREX [Concomitant]
     Dosage: 100 MG, UNK
  5. LOVAZA [Concomitant]
     Dosage: 1 G, UNK
  6. AGGRENOX [Concomitant]
     Dosage: 200 MG, UNK
  7. VITAMIN C [Concomitant]
  8. MULTIVIT//VITAMINS NOS [Concomitant]
  9. FOLIC ACID [Concomitant]
  10. IRON [Concomitant]
  11. MUCINEX [Concomitant]
  12. RANITIDINE [Concomitant]
     Dosage: UNK UKN, UNK

REACTIONS (4)
  - Nail discolouration [Unknown]
  - Headache [Unknown]
  - Rash [Unknown]
  - White blood cell count decreased [Unknown]
